FAERS Safety Report 21378022 (Version 1)
Quarter: 2022Q3

REPORT INFORMATION
  Report Type: Spontaneous
  Country: FR (occurrence: FR)
  Receive Date: 20220926
  Receipt Date: 20220926
  Transmission Date: 20221026
  Serious: Yes (Other)
  Sender: FDA-Public Use
  Company Number: FR-SEATTLE GENETICS-2022SGN08183

PATIENT
  Sex: Male

DRUGS (5)
  1. TUKYSA [Suspect]
     Active Substance: TUCATINIB
     Indication: HER2 positive breast cancer
     Dosage: 150 MG
     Route: 065
     Dates: start: 20220805
  2. TUKYSA [Suspect]
     Active Substance: TUCATINIB
     Dosage: 300 MG BID
     Route: 065
     Dates: start: 20220808
  3. TUKYSA [Suspect]
     Active Substance: TUCATINIB
     Dosage: 250 MG BID
     Route: 065
     Dates: start: 20220829
  4. TRASTUZUMAB [Suspect]
     Active Substance: TRASTUZUMAB
     Indication: HER2 positive breast cancer
     Route: 065
  5. CAPECITABINE [Suspect]
     Active Substance: CAPECITABINE
     Indication: HER2 positive breast cancer
     Route: 065

REACTIONS (2)
  - Hypokalaemia [Unknown]
  - Diarrhoea [Unknown]
